FAERS Safety Report 6007775-9 (Version None)
Quarter: 2008Q4

REPORT INFORMATION
  Report Type: 
  Country: None (occurrence: None)
  Receive Date: 20081217
  Receipt Date: 20080604
  Transmission Date: 20090506
  Serious: No
  Sender: FDA-Public Use
  Company Number: US-ASTRAZENECA-2008UW11288

PATIENT
  Age: 73 Year
  Sex: Male
  Weight: 104.3 kg

DRUGS (9)
  1. CRESTOR [Suspect]
     Indication: BLOOD CHOLESTEROL INCREASED
     Route: 048
  2. ZETIA [Concomitant]
  3. METOPROLOL TARTRATE [Concomitant]
  4. HYDROCHLOROTHIAZIDE [Concomitant]
  5. NORVASC [Concomitant]
  6. METFORMIN HCL [Concomitant]
  7. PLAVIX [Concomitant]
  8. ASPIRIN [Concomitant]
  9. PRAVACHOL [Concomitant]

REACTIONS (3)
  - BACK DISORDER [None]
  - FEELING ABNORMAL [None]
  - MYALGIA [None]
